FAERS Safety Report 10205589 (Version 2)
Quarter: 2014Q2

REPORT INFORMATION
  Report Type: Spontaneous
  Country: US (occurrence: US)
  Receive Date: 20140529
  Receipt Date: 20140613
  Transmission Date: 20141212
  Serious: Yes (Hospitalization)
  Sender: FDA-Public Use
  Company Number: US-MERCK-1405USA014137

PATIENT
  Age: 71 Year
  Sex: Female

DRUGS (2)
  1. NASONEX [Suspect]
     Indication: HYPERSENSITIVITY
     Dosage: 2 SPRAYS IN EACH NOSTRIL, QD
     Route: 045
     Dates: start: 2008
  2. NASONEX [Suspect]
     Dosage: 2 SPRAYS IN EACH NOSTRIL, QD
     Route: 045
     Dates: end: 2004

REACTIONS (6)
  - Adverse event [Recovering/Resolving]
  - Bronchitis [Recovering/Resolving]
  - Rhinorrhoea [Unknown]
  - Incorrect dose administered [Unknown]
  - Product quality issue [Unknown]
  - Drug dose omission [Unknown]
